FAERS Safety Report 19217253 (Version 1)
Quarter: 2021Q2

REPORT INFORMATION
  Report Type: Spontaneous
  Country: US (occurrence: US)
  Receive Date: 20210505
  Receipt Date: 20210505
  Transmission Date: 20210717
  Serious: No
  Sender: FDA-Public Use
  Company Number: US-ASTRAZENECA-2021A314087

PATIENT
  Sex: Male

DRUGS (2)
  1. TIOTROPIUM [Concomitant]
     Active Substance: TIOTROPIUM
     Indication: CHRONIC OBSTRUCTIVE PULMONARY DISEASE
  2. SYMBICORT [Suspect]
     Active Substance: BUDESONIDE\FORMOTEROL FUMARATE DIHYDRATE
     Indication: CHRONIC OBSTRUCTIVE PULMONARY DISEASE
     Dosage: SYMBICORT 80?4.5 MCG 2 PUFFS TWO TIMES A DAY
     Route: 055
     Dates: start: 20210406

REACTIONS (3)
  - Chest discomfort [Recovered/Resolved]
  - Asthma [Unknown]
  - Chest pain [Recovered/Resolved]
